FAERS Safety Report 9721156 (Version 4)
Quarter: 2014Q1

REPORT INFORMATION
  Report Type: Spontaneous
  Country: US (occurrence: US)
  Receive Date: 20131129
  Receipt Date: 20140128
  Transmission Date: 20141002
  Serious: Yes (Other)
  Sender: FDA-Public Use
  Company Number: US-009507513-1311USA011011

PATIENT
  Sex: 0

DRUGS (5)
  1. REBETOL [Suspect]
     Indication: CHRONIC HEPATITIS C
     Route: 048
  2. VICTRELIS [Suspect]
     Indication: CHRONIC HEPATITIS C
     Route: 048
  3. PEGINTRON [Suspect]
     Indication: CHRONIC HEPATITIS C
  4. TELAPREVIR [Suspect]
  5. PEGINTERFERON ALFA-2A [Suspect]
     Indication: CHRONIC HEPATITIS C

REACTIONS (1)
  - Immune thrombocytopenic purpura [Unknown]
